FAERS Safety Report 6804673-5 (Version None)
Quarter: 2010Q2

REPORT INFORMATION
  Report Type: 
  Country: None (occurrence: None)
  Receive Date: 20100628
  Receipt Date: 20070530
  Transmission Date: 20101027
  Serious: No
  Sender: FDA-Public Use
  Company Number: US-PFIZER INC-2007026196

PATIENT
  Sex: Female
  Weight: 10 kg

DRUGS (1)
  1. GENOTROPIN [Suspect]
     Indication: GROWTH HORMONE DEFICIENCY
     Dosage: EVERYDAY
     Dates: start: 20060201

REACTIONS (1)
  - BLOOD ELECTROLYTES ABNORMAL [None]
